FAERS Safety Report 20628411 (Version 1)
Quarter: 2022Q1

REPORT INFORMATION
  Report Type: Spontaneous
  Country: DE (occurrence: DE)
  Receive Date: 20220323
  Receipt Date: 20220323
  Transmission Date: 20220423
  Serious: Yes (Life-Threatening, Hospitalization, Other)
  Sender: FDA-Public Use
  Company Number: DE-BAYER-2022A041658

PATIENT
  Age: 70 Year
  Sex: Female
  Weight: 100 kg

DRUGS (1)
  1. ULTRAVIST [Suspect]
     Active Substance: IOPROMIDE
     Indication: Angiogram
     Dosage: 80 ML, ONCE
     Route: 042
     Dates: start: 20220214, end: 20220214

REACTIONS (9)
  - Anaphylactic shock [Recovering/Resolving]
  - Cardiovascular insufficiency [Recovering/Resolving]
  - Respiratory failure [Recovering/Resolving]
  - Seizure [Recovering/Resolving]
  - Enuresis [Recovering/Resolving]
  - Hypotonia [Recovering/Resolving]
  - Balance disorder [Recovering/Resolving]
  - Flushing [Recovering/Resolving]
  - Ankle fracture [Recovering/Resolving]

NARRATIVE: CASE EVENT DATE: 20220214
